FAERS Safety Report 19166671 (Version 1)
Quarter: 2021Q2

REPORT INFORMATION
  Report Type: Not Available
  Country: US (occurrence: None)
  Receive Date: 20210421
  Receipt Date: 20210421
  Transmission Date: 20210717
  Serious: No
  Sender: FDA-Public Use
  Company Number: US-AKORN-165935

PATIENT
  Sex: Female

DRUGS (1)
  1. OLOPATADINE HCL OPHTHALMIC SOLUTION, USP [Suspect]
     Active Substance: OLOPATADINE HYDROCHLORIDE

REACTIONS (3)
  - Ocular hyperaemia [None]
  - Swelling of eyelid [None]
  - Eye infection [None]
